FAERS Safety Report 5776576-9 (Version None)
Quarter: 2008Q2

REPORT INFORMATION
  Report Type: 
  Country: None (occurrence: None)
  Receive Date: 20080616
  Receipt Date: 20080605
  Transmission Date: 20081010
  Serious: Yes (Other)
  Sender: FDA-Public Use
  Company Number: 230101K07USA

PATIENT
  Age: 42 Year
  Sex: Male
  Weight: 70.7611 kg

DRUGS (3)
  1. REBIF [Suspect]
     Indication: MULTIPLE SCLEROSIS
     Dosage: 44 MCG, 3 IN 1 WEEKS, SUBCUTANEOUS
     Route: 058
     Dates: start: 20030101, end: 20060901
  2. NEURONTIN [Concomitant]
  3. CLONAZEPAM [Concomitant]

REACTIONS (3)
  - GRANULOMA [None]
  - LIVER FUNCTION TEST ABNORMAL [None]
  - SARCOIDOSIS [None]
